FAERS Safety Report 14412904 (Version 3)
Quarter: 2018Q1

REPORT INFORMATION
  Report Type: Spontaneous
  Country: FR (occurrence: FR)
  Receive Date: 20180119
  Receipt Date: 20180209
  Transmission Date: 20180509
  Serious: Yes (Hospitalization)
  Sender: FDA-Public Use
  Company Number: FR-BAUSCH-BL-2018-001334

PATIENT
  Age: 84 Year
  Sex: Male
  Weight: 79 kg

DRUGS (19)
  1. ZELITREX [Concomitant]
     Active Substance: VALACYCLOVIR HYDROCHLORIDE
     Indication: ANTIVIRAL TREATMENT
     Route: 048
     Dates: start: 20160212
  2. REVLIMID [Suspect]
     Active Substance: LENALIDOMIDE
     Indication: PLASMA CELL MYELOMA
     Dosage: 25 MILLIGRAM (525MG IN 28 DAYS)
     Route: 048
     Dates: start: 20160212
  3. DIFFU K [Concomitant]
     Active Substance: POTASSIUM CHLORIDE
     Indication: HYPOKALAEMIA
     Route: 048
     Dates: start: 20160220
  4. XANAX [Concomitant]
     Active Substance: ALPRAZOLAM
     Dosage: 075 MILLIGRAM
     Route: 048
     Dates: start: 20160204
  5. ACUPAN [Concomitant]
     Active Substance: NEFOPAM HYDROCHLORIDE
     Indication: PAIN
     Route: 048
     Dates: start: 20160204
  6. BROMAZEPAM [Concomitant]
     Active Substance: BROMAZEPAM
     Indication: PROPHYLAXIS
     Route: 048
     Dates: start: 20160204
  7. DARATUMUMAB [Concomitant]
     Active Substance: DARATUMUMAB
     Indication: PLASMA CELL MYELOMA
     Dosage: MONTHLY
     Route: 041
     Dates: start: 20160212
  8. BACTRIM [Concomitant]
     Active Substance: SULFAMETHOXAZOLE\TRIMETHOPRIM
     Indication: PROSTATITIS
     Dosage: WEEKLY
     Route: 048
     Dates: start: 20160212
  9. DEXAMETHASONE. [Suspect]
     Active Substance: DEXAMETHASONE
     Indication: PLASMA CELL MYELOMA
     Dosage: WEEKLY
     Route: 041
     Dates: start: 20160212
  10. KARDEGIC [Concomitant]
     Active Substance: ASPIRIN DL-LYSINE
     Indication: THROMBOSIS PROPHYLAXIS
     Route: 048
     Dates: start: 20160827
  11. ZOMETA [Concomitant]
     Active Substance: ZOLEDRONIC ACID
     Dosage: 1333 MILLIGRAM, 1 MONTH
     Route: 041
     Dates: start: 20160408
  12. MOVICOL [Concomitant]
     Active Substance: POLYETHYLENE GLYCOL 3350\POTASSIUM CHLORIDE\SODIUM BICARBONATE\SODIUM CHLORIDE
     Indication: CONSTIPATION
     Route: 048
     Dates: start: 20160218
  13. LEDERFOLINE [Concomitant]
     Active Substance: LEUCOVORIN CALCIUM
     Indication: HAEMATOTOXICITY
     Dosage: WEEKLY
     Route: 048
     Dates: start: 20160212
  14. INEXIUM [Concomitant]
     Active Substance: ESOMEPRAZOLE
     Indication: GASTROOESOPHAGEAL REFLUX DISEASE
     Route: 048
     Dates: start: 20160520
  15. IMOVANE [Concomitant]
     Active Substance: ZOPICLONE
     Indication: SEDATIVE THERAPY
     Route: 048
     Dates: start: 20160318
  16. ZOMETA [Concomitant]
     Active Substance: ZOLEDRONIC ACID
     Indication: HYPERCALCAEMIA
     Dosage: 4 MG MONTHLY
     Route: 041
     Dates: start: 20160408
  17. ORACILLINE [Concomitant]
     Active Substance: PENICILLIN V
     Indication: ARTHRALGIA
     Route: 048
     Dates: start: 20160212
  18. BACTRIM [Concomitant]
     Active Substance: SULFAMETHOXAZOLE\TRIMETHOPRIM
     Indication: PSEUDOMONAS INFECTION
  19. XANAX [Concomitant]
     Active Substance: ALPRAZOLAM
     Indication: ANXIETY
     Route: 048
     Dates: start: 20160204

REACTIONS (1)
  - Ischaemic stroke [Not Recovered/Not Resolved]

NARRATIVE: CASE EVENT DATE: 20171218
